FAERS Safety Report 21517558 (Version 1)
Quarter: 2022Q4

REPORT INFORMATION
  Report Type: Report from Study
  Country: US (occurrence: US)
  Receive Date: 20221028
  Receipt Date: 20221028
  Transmission Date: 20230113
  Serious: Yes (Other)
  Sender: FDA-Public Use
  Company Number: US-ABBVIE-4176098

PATIENT
  Sex: Female

DRUGS (5)
  1. HUMIRA [Suspect]
     Active Substance: ADALIMUMAB
     Indication: Psoriatic arthropathy
     Route: 058
  2. HUMIRA [Suspect]
     Active Substance: ADALIMUMAB
     Indication: Uveitis
  3. Moderna [Concomitant]
     Indication: COVID-19 immunisation
     Dosage: FREQUENCY 1-1-ONCE?FIRST DOSE
     Route: 030
     Dates: start: 20211101, end: 20211101
  4. Moderna [Concomitant]
     Indication: COVID-19 immunisation
     Dosage: FREQUENCY 1-1-ONCE?SECOND DOSE
     Route: 030
     Dates: start: 20211201, end: 20211201
  5. Moderna [Concomitant]
     Indication: COVID-19 immunisation
     Dosage: FREQUENCY 1-1-ONCE?BOOSTER DOSE/THIRD DOSE
     Route: 030
     Dates: start: 20220501, end: 20220501

REACTIONS (2)
  - Spinal operation [Unknown]
  - Therapeutic product effect decreased [Unknown]
